FAERS Safety Report 4267064-X (Version None)
Quarter: 2004Q1

REPORT INFORMATION
  Report Type: 
  Country: None (occurrence: None)
  Receive Date: 20040107
  Receipt Date: 20031226
  Transmission Date: 20041129
  Serious: Yes (Hospitalization)
  Sender: FDA-Public Use
  Company Number: JP-JNJFOC-20031203651

PATIENT
  Age: 52 Year
  Sex: Female
  Weight: 49 kg

DRUGS (11)
  1. REMICADE [Suspect]
     Indication: RHEUMATOID ARTHRITIS
     Dosage: SEE IMAGE
     Route: 041
     Dates: start: 20031018, end: 20031018
  2. REMICADE [Suspect]
     Indication: RHEUMATOID ARTHRITIS
     Dosage: SEE IMAGE
     Route: 041
     Dates: start: 20030920
  3. RHEUMATREX [Suspect]
     Dosage: 7.5 MG,  IN 1 WEEK,
     Dates: start: 19980610
  4. MEDROL [Concomitant]
  5. METHOTREXATE [Concomitant]
  6. INFREE S (INDOMETACIN) CAPSULES [Concomitant]
  7. FOLIAMIN (FOLIC ACID) TABLETS [Concomitant]
  8. GASTER (FAMOTIDINE) TABLETS [Concomitant]
  9. CONIEL (BENIDIPINE HYDROCHLORIDE) TABLETS [Concomitant]
  10. DEPAS (ETIZOLAM) TABLETS [Concomitant]
  11. MUCOSTA (REBAMIPIDE) TABLETS [Concomitant]

REACTIONS (3)
  - INTERSTITIAL LUNG DISEASE [None]
  - PNEUMOCYSTIS CARINII PNEUMONIA [None]
  - RESPIRATORY DISTRESS [None]
